FAERS Safety Report 21010809 (Version 1)
Quarter: 2022Q2

REPORT INFORMATION
  Report Type: Spontaneous
  Country: US (occurrence: None)
  Receive Date: 20220624
  Receipt Date: 20220624
  Transmission Date: 20220721
  Serious: No
  Sender: FDA-Public Use
  Company Number: None

PATIENT
  Age: 86 Year
  Sex: Male

DRUGS (1)
  1. ERLEADA [Suspect]
     Active Substance: APALUTAMIDE
     Dosage: FREQUENCY : DAILY;?
     Route: 048
     Dates: start: 202204

REACTIONS (5)
  - Urticaria [None]
  - Rash [None]
  - Peripheral swelling [None]
  - Thrombosis [None]
  - Skin reaction [None]

NARRATIVE: CASE EVENT DATE: 20220603
